FAERS Safety Report 6423540-2 (Version None)
Quarter: 2009Q4

REPORT INFORMATION
  Report Type: 
  Country: None (occurrence: None)
  Receive Date: 20091102
  Receipt Date: 20090429
  Transmission Date: 20100525
  Serious: No
  Sender: FDA-Public Use
  Company Number: A0781290A

PATIENT
  Age: 78 Year
  Sex: Male

DRUGS (5)
  1. RYTHMOL SR [Suspect]
     Indication: ATRIAL FIBRILLATION
     Dosage: 325MG TWICE PER DAY
     Route: 048
     Dates: start: 20090101
  2. ATENOLOL [Concomitant]
  3. VASOTEC [Concomitant]
  4. ASPIRIN [Concomitant]
  5. OXYBUTYNIN CHLORIDE [Concomitant]

REACTIONS (4)
  - CARDIAC FLUTTER [None]
  - DRUG ADMINISTRATION ERROR [None]
  - DRUG INEFFECTIVE [None]
  - MEDICATION RESIDUE [None]
